FAERS Safety Report 23706764 (Version 3)
Quarter: 2024Q2

REPORT INFORMATION
  Report Type: Other
  Country: CA (occurrence: CA)
  Receive Date: 20240404
  Receipt Date: 20240619
  Transmission Date: 20240715
  Serious: Yes (Other)
  Sender: FDA-Public Use
  Company Number: CA-APOTEX-2024AP004125

PATIENT
  Age: 54 Year
  Sex: Female

DRUGS (6)
  1. TRAMADOL [Interacting]
     Active Substance: TRAMADOL\TRAMADOL HYDROCHLORIDE
     Indication: Pain
     Dosage: UNK
     Route: 065
  2. CONTRAVE [Interacting]
     Active Substance: BUPROPION HYDROCHLORIDE\NALTREXONE HYDROCHLORIDE
     Indication: Weight control
     Dosage: 2 DOSAGE FORM, BID
     Route: 048
  3. CONTRAVE [Interacting]
     Active Substance: BUPROPION HYDROCHLORIDE\NALTREXONE HYDROCHLORIDE
     Dosage: 1 DOSAGE FORM, QD
     Route: 048
  4. CONTRAVE [Interacting]
     Active Substance: BUPROPION HYDROCHLORIDE\NALTREXONE HYDROCHLORIDE
     Dosage: 1 DOSAGE FORM, BID
     Route: 048
  5. CONTRAVE [Interacting]
     Active Substance: BUPROPION HYDROCHLORIDE\NALTREXONE HYDROCHLORIDE
     Dosage: UNK
     Route: 048
  6. CONTRAVE [Interacting]
     Active Substance: BUPROPION HYDROCHLORIDE\NALTREXONE HYDROCHLORIDE
     Dosage: UNK
     Route: 048

REACTIONS (12)
  - Dislocation of vertebra [Not Recovered/Not Resolved]
  - Contraindicated product administered [Not Recovered/Not Resolved]
  - Dysphagia [Not Recovered/Not Resolved]
  - Joint dislocation [Not Recovered/Not Resolved]
  - Labelled drug-drug interaction issue [Not Recovered/Not Resolved]
  - Non-alcoholic fatty liver [Not Recovered/Not Resolved]
  - Throat irritation [Not Recovered/Not Resolved]
  - Food craving [Not Recovered/Not Resolved]
  - Taste disorder [Not Recovered/Not Resolved]
  - Food allergy [Not Recovered/Not Resolved]
  - Abdominal pain upper [Not Recovered/Not Resolved]
  - Nausea [Not Recovered/Not Resolved]
